FAERS Safety Report 10306711 (Version 1)
Quarter: 2014Q3

REPORT INFORMATION
  Report Type: Spontaneous
  Country: US (occurrence: US)
  Receive Date: 20140715
  Receipt Date: 20140715
  Transmission Date: 20150326
  Serious: No
  Sender: FDA-Public Use
  Company Number: US-PFIZER INC-2014193463

PATIENT
  Age: 27 Year
  Sex: Male
  Weight: 81.63 kg

DRUGS (3)
  1. LYRICA [Suspect]
     Active Substance: PREGABALIN
     Indication: DIABETIC NEUROPATHY
  2. KEPPRA [Concomitant]
     Active Substance: LEVETIRACETAM
     Indication: CONVULSION
     Dosage: 1000 MG, 2X/DAY
     Route: 048
  3. LYRICA [Suspect]
     Active Substance: PREGABALIN
     Indication: CONVULSION
     Dosage: 750 MG(275MG ORAL CAPSULE IN THE)
     Route: 048
     Dates: start: 201405

REACTIONS (3)
  - Somnolence [Unknown]
  - Intentional product misuse [Unknown]
  - Euphoric mood [Recovering/Resolving]

NARRATIVE: CASE EVENT DATE: 201405
